FAERS Safety Report 5623121-4 (Version None)
Quarter: 2008Q1

REPORT INFORMATION
  Report Type: 
  Country: None (occurrence: None)
  Receive Date: 20080212
  Receipt Date: 20080208
  Transmission Date: 20080703
  Serious: Yes (Life-Threatening, Hospitalization)
  Sender: FDA-Public Use
  Company Number: B0496645A

PATIENT
  Age: 75 Year
  Sex: Male

DRUGS (11)
  1. ZANTAC [Suspect]
     Indication: GASTRITIS PROPHYLAXIS
     Dosage: 100MG PER DAY
     Route: 042
     Dates: start: 20071121, end: 20071121
  2. ORGADRONE [Suspect]
     Indication: ANTIALLERGIC THERAPY
     Dosage: 11.4MG PER DAY
     Route: 042
     Dates: start: 20071121, end: 20071121
  3. DOCETAXEL [Concomitant]
     Indication: NEOPLASM MALIGNANT
     Dosage: 93MG PER DAY
     Route: 042
     Dates: start: 20060201, end: 20071031
  4. CARBOPLATIN [Concomitant]
     Indication: NEOPLASM MALIGNANT
     Dosage: 174MG PER DAY
     Route: 042
     Dates: start: 20060201, end: 20071031
  5. TULOBUTEROL [Concomitant]
     Indication: BRONCHIECTASIS
     Dosage: 2MG PER DAY
     Route: 062
     Dates: start: 20071031
  6. MYSLEE [Concomitant]
     Indication: INSOMNIA
     Dosage: 5MG PER DAY
     Route: 048
  7. FORSENID [Concomitant]
     Indication: CONSTIPATION
     Dosage: 24MG PER DAY
     Route: 048
     Dates: start: 20060606
  8. MUCOSTA [Concomitant]
     Indication: PROPHYLAXIS
     Dosage: 300MG PER DAY
     Route: 048
     Dates: start: 20070307
  9. INTEBAN SP [Concomitant]
     Indication: ANALGESIC INTERVENTION SUPPORTIVE THERAPY
     Dosage: 50MG PER DAY
     Route: 048
     Dates: start: 20071120
  10. SELBEX [Concomitant]
     Indication: GASTRITIS PROPHYLAXIS
     Dosage: 100MG PER DAY
     Route: 048
     Dates: start: 20071120
  11. SODIUM CHLORIDE [Concomitant]

REACTIONS (9)
  - ANAPHYLACTIC SHOCK [None]
  - BLOOD PRESSURE DECREASED [None]
  - COLD SWEAT [None]
  - DYSPNOEA [None]
  - ERYTHEMA [None]
  - PALLOR [None]
  - PRURITUS [None]
  - SHOCK [None]
  - WHEEZING [None]
